FAERS Safety Report 6820347-9 (Version None)
Quarter: 2010Q3

REPORT INFORMATION
  Report Type: 
  Country: None (occurrence: None)
  Receive Date: 20100707
  Receipt Date: 20100625
  Transmission Date: 20110219
  Serious: Yes (Other)
  Sender: FDA-Public Use
  Company Number: AU-TEVA-239115ISR

PATIENT

DRUGS (1)
  1. COPAXONE [Suspect]

REACTIONS (1)
  - RENAL TUBULAR ACIDOSIS [None]
